FAERS Safety Report 17258410 (Version 1)
Quarter: 2020Q1

REPORT INFORMATION
  Report Type: Spontaneous
  Country: GB (occurrence: GB)
  Receive Date: 20200110
  Receipt Date: 20200110
  Transmission Date: 20200409
  Serious: Yes (Other)
  Sender: FDA-Public Use
  Company Number: GB-NOVOPROD-705195

PATIENT
  Age: 57 Year
  Sex: Male
  Weight: 119 kg

DRUGS (13)
  1. CHLORPHENAMINE [Concomitant]
     Active Substance: CHLORPHENIRAMINE MALEATE
     Dosage: 4 QD
     Route: 065
     Dates: start: 20191105, end: 20191112
  2. GLUCOPHAGE [Concomitant]
     Active Substance: METFORMIN HYDROCHLORIDE
     Dosage: 2 QD
     Route: 065
     Dates: start: 20190425
  3. CANAGLIFLOZIN [Concomitant]
     Active Substance: CANAGLIFLOZIN
     Dosage: 1QD
     Route: 065
     Dates: start: 20190425
  4. AMOXICILLIN. [Concomitant]
     Active Substance: AMOXICILLIN
     Dosage: 3 QD
     Route: 065
     Dates: start: 20191105, end: 20191112
  5. TRULICITY [Concomitant]
     Active Substance: DULAGLUTIDE
     Dosage: UNK (USE AS DIRECTED.)
     Route: 065
     Dates: start: 20190425, end: 20190926
  6. OZEMPIC [Suspect]
     Active Substance: SEMAGLUTIDE
     Indication: PRODUCT USED FOR UNKNOWN INDICATION
     Dosage: 0.25MG/0.19ML
     Route: 065
     Dates: start: 20190926, end: 20190927
  7. GLICLAZIDE [Concomitant]
     Active Substance: GLICLAZIDE
     Dosage: 2 QD (MORNING AND EVENING.)
     Route: 065
     Dates: start: 20191106
  8. AMLODIPINE [Concomitant]
     Active Substance: AMLODIPINE BESYLATE
     Dosage: 1 QD
     Route: 065
     Dates: start: 20190425
  9. TERBINAFINE. [Concomitant]
     Active Substance: TERBINAFINE
     Dosage: 2 QD
     Route: 065
     Dates: start: 20191105, end: 20191112
  10. ATORVASTATIN [Concomitant]
     Active Substance: ATORVASTATIN
     Dosage: 1 QD
     Route: 065
     Dates: start: 20190425
  11. OFLOXACIN. [Concomitant]
     Active Substance: OFLOXACIN
     Dosage: 2 QD
     Route: 065
     Dates: start: 20191011, end: 20191025
  12. INDAPAMIDE. [Concomitant]
     Active Substance: INDAPAMIDE
     Dosage: 1 QD (MORNING.)
     Route: 065
     Dates: start: 20190425
  13. NITROFURANTOIN. [Concomitant]
     Active Substance: NITROFURANTOIN
     Dosage: 2 QD
     Route: 065
     Dates: start: 20191015, end: 20191022

REACTIONS (1)
  - Pruritus genital [Recovered/Resolved]

NARRATIVE: CASE EVENT DATE: 20190926
